FAERS Safety Report 15753310 (Version 2)
Quarter: 2019Q1

REPORT INFORMATION
  Report Type: Report from Study
  Country: None (occurrence: CN)
  Receive Date: 20181222
  Receipt Date: 20190201
  Transmission Date: 20190417
  Serious: Yes (Hospitalization)
  Sender: FDA-Public Use
  Company Number: CN-ABBVIE-18K-035-2601219-00

PATIENT
  Age: 50 Year
  Sex: Female
  Weight: 74 kg

DRUGS (3)
  1. HUMIRA [Suspect]
     Active Substance: ADALIMUMAB
     Indication: ANKYLOSING SPONDYLITIS
     Route: 058
     Dates: start: 20180726, end: 20181122
  2. IGURATIMOD [Concomitant]
     Active Substance: IGURATIMOD
     Indication: RHEUMATOID ARTHRITIS
     Route: 048
     Dates: start: 20180622
  3. IGURATIMOD [Concomitant]
     Active Substance: IGURATIMOD
     Indication: GASTRIC ULCER
     Route: 048
     Dates: start: 20180622, end: 20180627

REACTIONS (1)
  - Undifferentiated connective tissue disease [Recovering/Resolving]

NARRATIVE: CASE EVENT DATE: 20181207
